FAERS Safety Report 14032847 (Version 2)
Quarter: 2017Q4

REPORT INFORMATION
  Report Type: Spontaneous
  Country: ES (occurrence: ES)
  Receive Date: 20171003
  Receipt Date: 20171017
  Transmission Date: 20180321
  Serious: Yes (Other)
  Sender: FDA-Public Use
  Company Number: ES-TAKEDA-2017TEU004146

PATIENT
  Age: 64 Year
  Sex: Male
  Weight: 74 kg

DRUGS (3)
  1. CEFTAZIDIME. [Concomitant]
     Active Substance: CEFTAZIDIME
     Indication: PROSTATITIS
     Dosage: UNK
     Route: 048
  2. TACHOSIL [Suspect]
     Active Substance: FIBRINOGEN HUMAN\THROMBIN HUMAN
     Indication: PRODUCT USED FOR UNKNOWN INDICATION
     Dosage: UNK
     Route: 065
  3. AMPICILLIN [Concomitant]
     Active Substance: AMPICILLIN
     Indication: PROSTATITIS
     Dosage: UNK
     Route: 048

REACTIONS (2)
  - Spinal cord compression [Recovered/Resolved]
  - Product use complaint [Unknown]
